FAERS Safety Report 13924712 (Version 1)
Quarter: 2017Q3

REPORT INFORMATION
  Report Type: Spontaneous
  Country: SI (occurrence: SI)
  Receive Date: 20170831
  Receipt Date: 20170831
  Transmission Date: 20171127
  Serious: Yes (Death, Other)
  Sender: FDA-Public Use
  Company Number: SI-BAYER-2017-160621

PATIENT
  Sex: Female

DRUGS (1)
  1. STIVARGA [Suspect]
     Active Substance: REGORAFENIB
     Indication: RECTAL CANCER METASTATIC
     Dosage: UNK
     Dates: start: 201304, end: 201411

REACTIONS (7)
  - Metastases to lung [None]
  - Hypertension [Recovering/Resolving]
  - Carcinoembryonic antigen increased [None]
  - Hyperkeratosis [None]
  - Skin disorder [Recovering/Resolving]
  - Death [Fatal]
  - Transaminases increased [None]

NARRATIVE: CASE EVENT DATE: 201304
